FAERS Safety Report 7918180-X (Version None)
Quarter: 2011Q4

REPORT INFORMATION
  Report Type: 
  Country: None (occurrence: None)
  Receive Date: 20111116
  Receipt Date: 20111109
  Transmission Date: 20120403
  Serious: Yes (Life-Threatening, Hospitalization, Disabling)
  Sender: FDA-Public Use
  Company Number: US-ACTELION-A-NJ2011-56888

PATIENT

DRUGS (5)
  1. IMURAN [Concomitant]
  2. TRACLEER [Suspect]
     Indication: PULMONARY ARTERIAL HYPERTENSION
     Dosage: 125 MG, BID
     Route: 048
     Dates: start: 20081218
  3. TRACLEER [Suspect]
     Dosage: 62.5 MG, BID
     Route: 048
     Dates: start: 20081118
  4. REVATIO [Concomitant]
  5. TRACLEER [Suspect]
     Dosage: UNK
     Route: 048
     Dates: start: 20060828

REACTIONS (1)
  - CEREBRAL ARTERY THROMBOSIS [None]
